FAERS Safety Report 15145692 (Version 2)
Quarter: 2018Q3

REPORT INFORMATION
  Report Type: Report from Study
  Country: CA (occurrence: CA)
  Receive Date: 20180714
  Receipt Date: 20180728
  Transmission Date: 20181010
  Serious: Yes (Death)
  Sender: FDA-Public Use
  Company Number: CA-HLSUS-2018-CA-000250

PATIENT
  Sex: Male

DRUGS (1)
  1. CLOZARIL [Suspect]
     Active Substance: CLOZAPINE
     Indication: SCHIZOPHRENIA
     Dosage: 200MG ONCE DAILY
     Route: 048
     Dates: start: 20030131, end: 20180702

REACTIONS (1)
  - Lung cancer metastatic [Fatal]
